FAERS Safety Report 8607103 (Version 5)
Quarter: 2014Q1

REPORT INFORMATION
  Report Type: Spontaneous
  Country: US (occurrence: US)
  Receive Date: 20120611
  Receipt Date: 20140130
  Transmission Date: 20141002
  Serious: Yes (Hospitalization)
  Sender: FDA-Public Use
  Company Number: US-ASTRAZENECA-2012SE35552

PATIENT
  Age: 20139 Day
  Sex: Female

DRUGS (12)
  1. NEXIUM [Suspect]
     Route: 048
     Dates: start: 2004
  2. NEXIUM [Suspect]
     Route: 048
     Dates: start: 20070621
  3. NEXIUM [Suspect]
     Route: 048
     Dates: start: 20100604
  4. TRAMADOL [Concomitant]
     Dates: start: 20110916
  5. TIZANIDINE [Concomitant]
     Dates: start: 20110916
  6. DICYCLOVERINE [Concomitant]
     Dates: start: 20110316
  7. ANASPAZ [Concomitant]
     Dates: start: 20101105
  8. ACIPHEX [Concomitant]
     Dates: start: 20081017
  9. PHENTERMINE [Concomitant]
     Dates: start: 20070920
  10. ZOFRAN ODT [Concomitant]
     Route: 048
     Dates: start: 20091006
  11. METOCLOPRAMIDE [Concomitant]
     Dates: start: 20090607
  12. PAROXETINE [Concomitant]

REACTIONS (5)
  - Ankle fracture [Unknown]
  - Osteoporosis [Unknown]
  - Limb injury [Unknown]
  - Joint injury [Unknown]
  - Osteoarthritis [Unknown]
